FAERS Safety Report 13817246 (Version 2)
Quarter: 2017Q3

REPORT INFORMATION
  Report Type: Spontaneous
  Country: JP (occurrence: JP)
  Receive Date: 20170731
  Receipt Date: 20170911
  Transmission Date: 20171127
  Serious: Yes (Other)
  Sender: FDA-Public Use
  Company Number: JP-PFIZER INC-2017329220

PATIENT
  Age: 88 Year
  Sex: Female
  Weight: 33 kg

DRUGS (12)
  1. SELARA [Suspect]
     Active Substance: EPLERENONE
     Dosage: 50 MG, DAILY
     Route: 048
     Dates: start: 201703, end: 20170719
  2. ALDACTONE A [Concomitant]
     Active Substance: SPIRONOLACTONE
     Dosage: 25 MG, 1X/DAY
     Route: 048
     Dates: start: 201707
  3. FLUITRAN [Suspect]
     Active Substance: TRICHLORMETHIAZIDE
     Dosage: 2 MG, 1X/DAY
     Route: 048
     Dates: start: 201703
  4. RENIVACE [Concomitant]
     Active Substance: ENALAPRIL
     Dosage: 5 MG, 1X/DAY
     Route: 048
     Dates: start: 201503
  5. AZOSEMIDE [Concomitant]
     Active Substance: AZOSEMIDE
     Dosage: UNK
  6. DIART [Concomitant]
     Active Substance: AZOSEMIDE
     Dosage: 30 MG, 1X/DAY
     Route: 048
     Dates: start: 201503, end: 201702
  7. DIART [Concomitant]
     Active Substance: AZOSEMIDE
     Dosage: 30 MG, 2X/DAY
     Route: 048
     Dates: start: 201703
  8. CRESTOR [Concomitant]
     Active Substance: ROSUVASTATIN CALCIUM
     Dosage: 2.5 MG, 1X/DAY
     Route: 048
     Dates: start: 201503, end: 201703
  9. ELIQUIS [Concomitant]
     Active Substance: APIXABAN
     Dosage: 2.5 MG, 2X/DAY
     Route: 048
     Dates: start: 201703
  10. PARIET [Concomitant]
     Active Substance: RABEPRAZOLE SODIUM
     Dosage: 10 MG, 1X/DAY
     Route: 048
     Dates: start: 201504
  11. ADALAT [Concomitant]
     Active Substance: NIFEDIPINE
     Dosage: 20 MG, 1X/DAY
     Route: 048
     Dates: start: 201503
  12. LASIX [Concomitant]
     Active Substance: FUROSEMIDE
     Dosage: 40 MG, 1X/DAY
     Route: 048
     Dates: start: 201703

REACTIONS (3)
  - Contraindicated product administered [Unknown]
  - Creatinine renal clearance decreased [Unknown]
  - Blood uric acid increased [Recovering/Resolving]

NARRATIVE: CASE EVENT DATE: 201703
